FAERS Safety Report 23727572 (Version 1)
Quarter: 2024Q2

REPORT INFORMATION
  Report Type: Spontaneous
  Country: EG (occurrence: EG)
  Receive Date: 20240410
  Receipt Date: 20240410
  Transmission Date: 20240716
  Serious: Yes (Other)
  Sender: FDA-Public Use
  Company Number: EG-HIKMA PHARMACEUTICALS USA INC.-EG-H14001-24-02829

PATIENT
  Age: 51 Year
  Sex: Female

DRUGS (7)
  1. CARBOPLATIN [Suspect]
     Active Substance: CARBOPLATIN
     Indication: Breast cancer
     Dosage: 300 MILLIGRAM, DILUTED IN 500 ML NORMAL SALINE
     Route: 065
  2. DOCETAXEL [Suspect]
     Active Substance: DOCETAXEL\DOCETAXEL ANHYDROUS
     Dosage: 100 MILLIGRAM, DILUTED IN 250 ML NORMAL SALINE
     Route: 065
  3. DOCETAXEL [Suspect]
     Active Substance: DOCETAXEL\DOCETAXEL ANHYDROUS
     Indication: Breast cancer
     Dosage: 140 MILLIGRAM, 3W, DILUTED IN 500 ML NORMAL SALINE AT A RATE OF TWO HOURS
     Route: 065
     Dates: start: 20231212
  4. DOCETAXEL [Suspect]
     Active Substance: DOCETAXEL\DOCETAXEL ANHYDROUS
     Dosage: 140 MILLIGRAM, 3W, DILUTED IN 500 ML NORMAL SALINE AT A RATE OF TWO HOURS
     Route: 065
     Dates: start: 20240102
  5. DOCETAXEL [Suspect]
     Active Substance: DOCETAXEL\DOCETAXEL ANHYDROUS
     Dosage: 60 MILLIGRAM
     Route: 065
     Dates: start: 20240123
  6. PACLITAXEL [Suspect]
     Active Substance: PACLITAXEL
     Indication: Breast cancer
     Dosage: 250 MILLIGRAM, WEEKLY, DILUTED IN 500 ML NORMAL SALINE AT A RATE OF TWO HOURS
     Route: 065
     Dates: start: 20231121
  7. PACLITAXEL [Suspect]
     Active Substance: PACLITAXEL
     Dosage: 250 MILLIGRAM, WEEKLY, DILUTED IN 500 ML NORMAL SALINE AT A RATE OF TWO HOURS
     Route: 065
     Dates: start: 20231212

REACTIONS (4)
  - Bone pain [Not Recovered/Not Resolved]
  - Gait inability [Not Recovered/Not Resolved]
  - Gait disturbance [Not Recovered/Not Resolved]
  - Neuropathy peripheral [Not Recovered/Not Resolved]

NARRATIVE: CASE EVENT DATE: 20231212
